FAERS Safety Report 5933329-6 (Version None)
Quarter: 2008Q4

REPORT INFORMATION
  Report Type: 
  Country: None (occurrence: None)
  Receive Date: 20081023
  Receipt Date: 20081010
  Transmission Date: 20090506
  Serious: Yes (Hospitalization, Other)
  Sender: FDA-Public Use
  Company Number: 230256K08USA

PATIENT
  Age: 57 Year
  Sex: Female

DRUGS (7)
  1. REBIF [Suspect]
     Indication: MULTIPLE SCLEROSIS
     Dosage: 22 MCG, 3 IN 1 WEEKS, SUBCUTANEOUS; 44 MCG, 3 IN 1 WEEKS, SUBCUTANEOUS
     Route: 058
     Dates: start: 20070112
  2. TORADOL [Concomitant]
  3. EXTRA STRENGTH TYLENOL [Concomitant]
  4. TRAMADOL HCL [Concomitant]
  5. DUONEB [Concomitant]
  6. PRILOSEC [Concomitant]
  7. NEXIUM [Concomitant]

REACTIONS (7)
  - ARTHRALGIA [None]
  - CARTILAGE INJURY [None]
  - CONDITION AGGRAVATED [None]
  - CYST [None]
  - DYSPEPSIA [None]
  - GASTROOESOPHAGEAL REFLUX DISEASE [None]
  - VOMITING [None]
